FAERS Safety Report 8507674-4 (Version None)
Quarter: 2012Q3

REPORT INFORMATION
  Report Type: 
  Country: None (occurrence: None)
  Receive Date: 20120713
  Receipt Date: 20120301
  Transmission Date: 20120928
  Serious: Yes (Hospitalization)
  Sender: FDA-Public Use
  Company Number: US-JNJCP-30000093744

PATIENT
  Sex: Female

DRUGS (1)
  1. REMBRANDT WHITENING MOUTHWASH FLOURIDE USA 049336059580 4933605958USA [Suspect]
     Route: 061
     Dates: start: 20120229

REACTIONS (3)
  - THERMAL BURN [None]
  - ACCIDENTAL EXPOSURE [None]
  - CHEMICAL INJURY [None]
